FAERS Safety Report 12888973 (Version 1)
Quarter: 2016Q4

REPORT INFORMATION
  Report Type: Spontaneous
  Country: FR (occurrence: FR)
  Receive Date: 20161027
  Receipt Date: 20161027
  Transmission Date: 20170207
  Serious: Yes (Hospitalization)
  Sender: FDA-Public Use
  Company Number: FR-PFIZER INC-2016486017

PATIENT
  Age: 77 Year
  Sex: Female

DRUGS (7)
  1. SUTENT [Suspect]
     Active Substance: SUNITINIB MALATE
     Indication: CLEAR CELL RENAL CELL CARCINOMA
     Dosage: UNK
     Route: 048
     Dates: start: 20160912, end: 20160928
  2. EXFORGE [Concomitant]
     Active Substance: AMLODIPINE BESYLATE\VALSARTAN
     Dosage: UNK
  3. DAFLON /02311201/ [Concomitant]
     Dosage: UNK
  4. INNOHEP [Concomitant]
     Active Substance: TINZAPARIN SODIUM
     Dosage: UNK
  5. INEGY [Concomitant]
     Active Substance: EZETIMIBE\SIMVASTATIN
     Dosage: UNK
  6. LEXOMIL [Concomitant]
     Active Substance: BROMAZEPAM
     Dosage: UNK
  7. OGAST [Concomitant]
     Active Substance: LANSOPRAZOLE
     Dosage: UNK

REACTIONS (8)
  - Acute kidney injury [Recovered/Resolved]
  - Hepatic function abnormal [Recovering/Resolving]
  - Normochromic normocytic anaemia [Recovering/Resolving]
  - Fall [Unknown]
  - General physical health deterioration [Unknown]
  - Hyponatraemia [Recovered/Resolved]
  - Thrombocytopenia [Recovered/Resolved]
  - Delusional disorder, unspecified type [Unknown]

NARRATIVE: CASE EVENT DATE: 201609
